FAERS Safety Report 14494683 (Version 2)
Quarter: 2018Q1

REPORT INFORMATION
  Report Type: Spontaneous
  Country: FI (occurrence: FI)
  Receive Date: 20180206
  Receipt Date: 20180314
  Transmission Date: 20180509
  Serious: Yes (Other)
  Sender: FDA-Public Use
  Company Number: FI-ELI_LILLY_AND_COMPANY-FI201801013413

PATIENT
  Sex: Male

DRUGS (2)
  1. COHEMIN [Concomitant]
     Dosage: UNK UNK, OTHER
     Route: 065
  2. ZYPADHERA [Suspect]
     Active Substance: OLANZAPINE PAMOATE
     Indication: SCHIZOPHRENIA
     Dosage: 405 MG, 2/M
     Route: 030
     Dates: start: 2013

REACTIONS (6)
  - Nausea [Unknown]
  - Dysstasia [Unknown]
  - Feeling abnormal [Unknown]
  - Asthenia [Unknown]
  - Post-injection delirium sedation syndrome [Unknown]
  - Overdose [Unknown]

NARRATIVE: CASE EVENT DATE: 2014
